FAERS Safety Report 12337517 (Version 3)
Quarter: 2016Q3

REPORT INFORMATION
  Report Type: Spontaneous
  Country: IT (occurrence: IT)
  Receive Date: 20160505
  Receipt Date: 20160705
  Transmission Date: 20161109
  Serious: Yes (Death, Hospitalization, Other)
  Sender: FDA-Public Use
  Company Number: IT-BRISTOL-MYERS SQUIBB COMPANY-BMS-2016-030427

PATIENT
  Age: 84 Year
  Sex: Female

DRUGS (2)
  1. COUMADIN [Suspect]
     Active Substance: WARFARIN SODIUM
     Indication: ATRIAL FIBRILLATION
     Route: 065
  2. KETOROLAC TROMETHAMINE PHYSICIAN PARTNER [Suspect]
     Active Substance: KETOROLAC TROMETHAMINE
     Indication: PRODUCT USED FOR UNKNOWN INDICATION
     Route: 065

REACTIONS (10)
  - Acute respiratory failure [Fatal]
  - Chronic obstructive pulmonary disease [Unknown]
  - Vertebroplasty [Unknown]
  - Osteoporosis [Unknown]
  - Spinal fracture [Unknown]
  - International normalised ratio increased [Fatal]
  - Spinal cord haemorrhage [Fatal]
  - Transient ischaemic attack [Unknown]
  - Paraplegia [Fatal]
  - Pain [Unknown]

NARRATIVE: CASE EVENT DATE: 20150224
